FAERS Safety Report 8573877-6 (Version None)
Quarter: 2012Q3

REPORT INFORMATION
  Report Type: 
  Country: None (occurrence: None)
  Receive Date: 20120806
  Receipt Date: 20120302
  Transmission Date: 20120928
  Serious: No
  Sender: FDA-Public Use
  Company Number: US-GLAXOSMITHKLINE-A0968402A

PATIENT
  Age: 70 Year
  Sex: Female

DRUGS (5)
  1. ALBUTEROL [Concomitant]
  2. NEBULIZER [Concomitant]
  3. FLUTICASONE PROPIONATE [Suspect]
     Indication: ASTHMA
     Dosage: 2PUFF TWICE PER DAY
     Route: 055
     Dates: start: 20120225
  4. FLUTICASONE PROPIONATE [Suspect]
     Dosage: 2PUFF TWICE PER DAY
     Route: 055
     Dates: start: 20120301
  5. UNSPECIFIED MEDICATION [Concomitant]
     Indication: ANXIETY

REACTIONS (3)
  - DYSPNOEA [None]
  - INHALATION THERAPY [None]
  - DRUG INEFFECTIVE [None]
